FAERS Safety Report 6111083-5 (Version None)
Quarter: 2009Q1

REPORT INFORMATION
  Report Type: 
  Country: None (occurrence: None)
  Receive Date: 20090311
  Receipt Date: 20080429
  Transmission Date: 20090719
  Serious: No
  Sender: FDA-Public Use
  Company Number: US-KINGPHARMUSA00001-K200800502

PATIENT
  Age: 65 Year
  Sex: Female

DRUGS (1)
  1. ALTACE [Suspect]
     Indication: HYPERTENSION
     Dosage: UNK, UNK
     Dates: start: 20070101, end: 20080301

REACTIONS (2)
  - DRUG ERUPTION [None]
  - PRURITUS [None]
